FAERS Safety Report 23862056 (Version 1)
Quarter: 2024Q2

REPORT INFORMATION
  Report Type: Spontaneous
  Country: GB (occurrence: GB)
  Receive Date: 20240516
  Receipt Date: 20240516
  Transmission Date: 20240715
  Serious: Yes (Hospitalization)
  Sender: FDA-Public Use
  Company Number: None

PATIENT
  Age: 52 Year
  Sex: Female

DRUGS (6)
  1. LAMOTRIGINE [Suspect]
     Active Substance: LAMOTRIGINE
     Dosage: 1 OD 14/7, THEN INCREASING BY 1 OD EVERY 14/7 UNTIL 100MG?OD
     Route: 065
  2. NORTRIPTYLINE [Concomitant]
     Active Substance: NORTRIPTYLINE
  3. RAMIPRIL [Concomitant]
     Active Substance: RAMIPRIL
  4. UNSPECIFIED INGREDIENT [Concomitant]
     Active Substance: UNSPECIFIED INGREDIENT
     Dosage: TIME INTERVAL: AS NECESSARY: 31.8% ISOTONIC NASAL SPRAY 1-2 SPRAYS TDS PRN
  5. LACTULOSE [Concomitant]
     Active Substance: LACTULOSE
     Dosage: TIME INTERVAL: AS NECESSARY: 15ML BD PRN
  6. FYBOGEL [Concomitant]
     Active Substance: HERBALS\PLANTAGO OVATA SEED
     Dosage: TIME INTERVAL: AS NECESSARY: 3.5G EFFERVESCENT GRANULES SACHETS SF 1 OD PRN

REACTIONS (5)
  - Dizziness [Unknown]
  - Malaise [Unknown]
  - Drug intolerance [Unknown]
  - Vertigo [Unknown]
  - Generalised tonic-clonic seizure [Unknown]
